FAERS Safety Report 18932082 (Version 2)
Quarter: 2021Q4

REPORT INFORMATION
  Report Type: Spontaneous
  Country: US (occurrence: US)
  Receive Date: 20210224
  Receipt Date: 20211001
  Transmission Date: 20220303
  Serious: No
  Sender: FDA-Public Use
  Company Number: US-GILEAD-2021-0517964

PATIENT
  Age: 51 Year
  Sex: Female
  Weight: 60 kg

DRUGS (28)
  1. ATRIPLA [Suspect]
     Active Substance: EFAVIRENZ\EMTRICITABINE\TENOFOVIR DISOPROXIL FUMARATE
     Indication: HIV infection
     Dosage: UNK
     Route: 048
     Dates: start: 2006
  2. ATRIPLA [Suspect]
     Active Substance: EFAVIRENZ\EMTRICITABINE\TENOFOVIR DISOPROXIL FUMARATE
     Dosage: UNK
     Route: 048
     Dates: start: 20120830, end: 20130113
  3. ATRIPLA [Suspect]
     Active Substance: EFAVIRENZ\EMTRICITABINE\TENOFOVIR DISOPROXIL FUMARATE
     Dosage: UNK
     Route: 048
     Dates: start: 20130320, end: 20130618
  4. ATRIPLA [Suspect]
     Active Substance: EFAVIRENZ\EMTRICITABINE\TENOFOVIR DISOPROXIL FUMARATE
     Dosage: UNK
     Route: 048
     Dates: start: 20130927, end: 201607
  5. ATRIPLA [Suspect]
     Active Substance: EFAVIRENZ\EMTRICITABINE\TENOFOVIR DISOPROXIL FUMARATE
     Dosage: UNK
     Route: 048
     Dates: start: 20160713, end: 201708
  6. ATRIPLA [Suspect]
     Active Substance: EFAVIRENZ\EMTRICITABINE\TENOFOVIR DISOPROXIL FUMARATE
     Dosage: UNK
     Route: 048
     Dates: start: 20170825, end: 201801
  7. ATRIPLA [Suspect]
     Active Substance: EFAVIRENZ\EMTRICITABINE\TENOFOVIR DISOPROXIL FUMARATE
     Dosage: UNK
     Route: 048
     Dates: start: 20180419, end: 201809
  8. ATRIPLA [Suspect]
     Active Substance: EFAVIRENZ\EMTRICITABINE\TENOFOVIR DISOPROXIL FUMARATE
     Dosage: UNK
     Route: 048
     Dates: start: 20181001, end: 20181031
  9. ATRIPLA [Suspect]
     Active Substance: EFAVIRENZ\EMTRICITABINE\TENOFOVIR DISOPROXIL FUMARATE
     Dosage: UNK
     Route: 048
     Dates: start: 20190825, end: 201909
  10. DESCOVY [Concomitant]
     Active Substance: EMTRICITABINE\TENOFOVIR ALAFENAMIDE FUMARATE
  11. TIVICAY [Concomitant]
     Active Substance: DOLUTEGRAVIR SODIUM
  12. ALBUTEROL [Concomitant]
     Active Substance: ALBUTEROL
  13. AMOXICILLIN [Concomitant]
     Active Substance: AMOXICILLIN
  14. AZITHROMYCIN ANHYDROUS [Concomitant]
     Active Substance: AZITHROMYCIN ANHYDROUS
  15. CEPHALEXIN MONOHYDRATE [Concomitant]
     Active Substance: CEPHALEXIN MONOHYDRATE
  16. DOXYCYCLINE [Concomitant]
     Active Substance: DOXYCYCLINE
  17. FLUCONAZOLE [Concomitant]
     Active Substance: FLUCONAZOLE
  18. HYDROCODONE [Concomitant]
     Active Substance: HYDROCODONE
  19. IBUPROFEN [Concomitant]
     Active Substance: IBUPROFEN
  20. KETOROLAC [Concomitant]
     Active Substance: KETOROLAC TROMETHAMINE
  21. LORATADINE [Concomitant]
     Active Substance: LORATADINE
  22. METRONIDAZOLE [Concomitant]
     Active Substance: METRONIDAZOLE
  23. MIRTAZAPINE [Concomitant]
     Active Substance: MIRTAZAPINE
  24. OXYCODONE [Concomitant]
     Active Substance: OXYCODONE
  25. RANITIDINE [Concomitant]
     Active Substance: RANITIDINE
  26. SULFAMETHIZOL [Concomitant]
  27. TERBINAFINE [Concomitant]
     Active Substance: TERBINAFINE
  28. TRAZODONE [Concomitant]
     Active Substance: TRAZODONE HYDROCHLORIDE

REACTIONS (7)
  - Glomerular filtration rate abnormal [Unknown]
  - Bone density decreased [Unknown]
  - Pain [Not Recovered/Not Resolved]
  - Emotional distress [Not Recovered/Not Resolved]
  - Anxiety [Not Recovered/Not Resolved]
  - Anhedonia [Not Recovered/Not Resolved]
  - Renal impairment [Not Recovered/Not Resolved]

NARRATIVE: CASE EVENT DATE: 20190204
